FAERS Safety Report 14347202 (Version 1)
Quarter: 2018Q1

REPORT INFORMATION
  Report Type: Spontaneous
  Country: US (occurrence: US)
  Receive Date: 20180102
  Receipt Date: 20180102
  Transmission Date: 20180509
  Serious: No
  Sender: FDA-Public Use
  Company Number: None

PATIENT
  Age: 64 Year
  Sex: Female

DRUGS (1)
  1. DOXEPIN [Suspect]
     Active Substance: DOXEPIN
     Route: 048
     Dates: start: 20171230, end: 20171231

REACTIONS (5)
  - Blood pressure increased [None]
  - Paraesthesia [None]
  - Chest discomfort [None]
  - Product substitution issue [None]
  - Hypoaesthesia [None]

NARRATIVE: CASE EVENT DATE: 20171231
